FAERS Safety Report 5594673-8 (Version None)
Quarter: 2008Q1

REPORT INFORMATION
  Report Type: 
  Country: None (occurrence: None)
  Receive Date: 20080115
  Receipt Date: 20080104
  Transmission Date: 20080703
  Serious: Yes (Hospitalization, Other)
  Sender: FDA-Public Use
  Company Number: 2007SP023204

PATIENT
  Age: 40 Year
  Sex: Male

DRUGS (6)
  1. NOXAFIL [Suspect]
     Indication: MENINGITIS CRYPTOCOCCAL
     Dosage: 400 MG;BID
     Dates: start: 20071102
  2. COTRIMOXAZOLE [Concomitant]
  3. KALETRA [Concomitant]
  4. KIVEXA [Concomitant]
  5. AMPHOTERICIN B [Concomitant]
  6. FLUCONAZOLE [Concomitant]

REACTIONS (6)
  - CONFUSIONAL STATE [None]
  - INFECTION [None]
  - MUSCLE ATROPHY [None]
  - SKIN LESION [None]
  - TOXOPLASMOSIS [None]
  - UPPER GASTROINTESTINAL HAEMORRHAGE [None]
